FAERS Safety Report 10082623 (Version 2)
Quarter: 2014Q2

REPORT INFORMATION
  Report Type: Spontaneous
  Country: CN (occurrence: CN)
  Receive Date: 20140416
  Receipt Date: 20140419
  Transmission Date: 20141212
  Serious: Yes (Other)
  Sender: FDA-Public Use
  Company Number: CN-009507513-1404CHN006796

PATIENT
  Age: 60 Year
  Sex: Male
  Weight: 65 kg

DRUGS (1)
  1. TIENAM [Suspect]
     Indication: PERITONITIS
     Dosage: 500 MG, BID
     Route: 041
     Dates: start: 20130302, end: 20130305

REACTIONS (1)
  - Epilepsy [Recovering/Resolving]
